FAERS Safety Report 12068875 (Version 1)
Quarter: 2016Q1

REPORT INFORMATION
  Report Type: Spontaneous
  Country: US (occurrence: US)
  Receive Date: 20160211
  Receipt Date: 20160211
  Transmission Date: 20160526
  Serious: Yes (Hospitalization, Other)
  Sender: FDA-Public Use
  Company Number: US-ACTELION-A-US2016-131194

PATIENT
  Age: 94 Year
  Sex: Female

DRUGS (4)
  1. LOSARTAN AND HYDROCHLOROTHIAZIDE [Concomitant]
     Active Substance: HYDROCHLOROTHIAZIDE\LOSARTAN POTASSIUM
  2. CENTRUM [Concomitant]
     Active Substance: VITAMINS
  3. VALCHLOR [Suspect]
     Active Substance: MECHLORETHAMINE
     Indication: MYCOSIS FUNGOIDES
     Dosage: UNK
     Route: 061
     Dates: start: 20140827
  4. CALTRATE [Concomitant]
     Active Substance: CALCIUM CARBONATE

REACTIONS (3)
  - Fall [Not Recovered/Not Resolved]
  - Hip fracture [Not Recovered/Not Resolved]
  - Upper limb fracture [Not Recovered/Not Resolved]
